FAERS Safety Report 16652030 (Version 6)
Quarter: 2020Q4

REPORT INFORMATION
  Report Type: Spontaneous
  Country: US (occurrence: US)
  Receive Date: 20190731
  Receipt Date: 20201009
  Transmission Date: 20210113
  Serious: Yes (Other)
  Sender: FDA-Public Use
  Company Number: US-PFIZER INC-2019315958

PATIENT
  Age: 68 Year
  Sex: Male

DRUGS (2)
  1. LYRICA [Suspect]
     Active Substance: PREGABALIN
     Dosage: 2 DF, DAILY
  2. LYRICA [Suspect]
     Active Substance: PREGABALIN
     Dosage: 150 MG, 2X/DAY (1 CAP(S) ORAL BID)
     Route: 048

REACTIONS (6)
  - Insomnia [Unknown]
  - Product prescribing error [Unknown]
  - Feeling abnormal [Unknown]
  - Renal disorder [Unknown]
  - Pain [Unknown]
  - Diabetes mellitus [Unknown]
